FAERS Safety Report 10105599 (Version 1)
Quarter: 2014Q2

REPORT INFORMATION
  Report Type: Spontaneous
  Country: US (occurrence: US)
  Receive Date: 20140424
  Receipt Date: 20140424
  Transmission Date: 20141212
  Serious: Yes (Hospitalization)
  Sender: FDA-Public Use
  Company Number: US-B.I. PHARMACEUTICALS,INC./RIDGEFIELD-2014-BI-18072BP

PATIENT
  Age: 61 Year
  Sex: Female
  Weight: 84 kg

DRUGS (6)
  1. COMBIVENT [Suspect]
     Indication: CHRONIC OBSTRUCTIVE PULMONARY DISEASE
     Dosage: STRENGTH: 20 MCG / 100 MCG; DAILY DOSE: 80 MCG/400 MCG
     Route: 055
     Dates: start: 2013
  2. DULERA [Concomitant]
     Indication: CHRONIC OBSTRUCTIVE PULMONARY DISEASE
     Dosage: 2 PUF
     Route: 055
  3. PROAIR [Concomitant]
     Indication: CHRONIC OBSTRUCTIVE PULMONARY DISEASE
     Dosage: 3 PUF
     Route: 055
  4. IRON [Concomitant]
     Indication: ANAEMIA
     Route: 048
  5. B12 [Concomitant]
     Route: 048
  6. CIMETIDINE [Concomitant]
     Route: 065

REACTIONS (2)
  - Arthralgia [Recovered/Resolved]
  - Arthralgia [Recovered/Resolved]
